FAERS Safety Report 16540082 (Version 2)
Quarter: 2019Q3

REPORT INFORMATION
  Report Type: Spontaneous
  Country: FR (occurrence: FR)
  Receive Date: 20190708
  Receipt Date: 20190801
  Transmission Date: 20191004
  Serious: Yes (Other)
  Sender: FDA-Public Use
  Company Number: FR-TESARO-2019-TSO02429-FR

PATIENT

DRUGS (1)
  1. ZEJULA [Suspect]
     Active Substance: NIRAPARIB
     Indication: OVARIAN CANCER RECURRENT
     Dosage: 200 UNK, UNK
     Route: 048

REACTIONS (5)
  - Neuropathy peripheral [Unknown]
  - Photosensitivity reaction [Unknown]
  - Thrombocytopenia [Unknown]
  - Psychomotor hyperactivity [Unknown]
  - Insomnia [Unknown]
